FAERS Safety Report 5698124-4 (Version None)
Quarter: 2008Q2

REPORT INFORMATION
  Report Type: 
  Country: None (occurrence: None)
  Receive Date: 20080403
  Receipt Date: 20080321
  Transmission Date: 20081010
  Serious: Yes (Death)
  Sender: FDA-Public Use
  Company Number: 000334

PATIENT
  Age: 17 Year
  Sex: Male

DRUGS (1)
  1. BUSULFEX [Suspect]
     Indication: STEM CELL TRANSPLANT
     Dates: start: 20070818, end: 20070819

REACTIONS (16)
  - ASCITES [None]
  - BACTERIAL SEPSIS [None]
  - BLOOD BILIRUBIN INCREASED [None]
  - CORD BLOOD TRANSPLANT THERAPY [None]
  - GASTROINTESTINAL OEDEMA [None]
  - HAEMATEMESIS [None]
  - HAEMATOMA [None]
  - NAUSEA [None]
  - OESOPHAGEAL HAEMORRHAGE [None]
  - PYREXIA [None]
  - RENAL IMPAIRMENT [None]
  - STAPHYLOCOCCAL SEPSIS [None]
  - STOMATITIS [None]
  - THROMBOTIC MICROANGIOPATHY [None]
  - VENOOCCLUSIVE LIVER DISEASE [None]
  - VOMITING [None]
